FAERS Safety Report 7211479-4 (Version None)
Quarter: 2011Q1

REPORT INFORMATION
  Report Type: 
  Country: None (occurrence: None)
  Receive Date: 20110105
  Receipt Date: 20101230
  Transmission Date: 20110831
  Serious: Yes (Death)
  Sender: FDA-Public Use
  Company Number: PHHY2010US89416

PATIENT
  Sex: Male

DRUGS (2)
  1. NEORAL [Suspect]
     Dosage: 100 MG, UNK
  2. NEORAL [Suspect]
     Dosage: 25 MG, UNK

REACTIONS (1)
  - DEATH [None]
